FAERS Safety Report 6129871-8 (Version None)
Quarter: 2009Q1

REPORT INFORMATION
  Report Type: 
  Country: None (occurrence: None)
  Receive Date: 20090323
  Receipt Date: 20090323
  Transmission Date: 20090719
  Serious: Yes (Life-Threatening, Hospitalization, Other)
  Sender: FDA-Public Use
  Company Number: None

PATIENT
  Age: 50 Year
  Sex: Female
  Weight: 73.9363 kg

DRUGS (1)
  1. ROZEREM [Suspect]
     Indication: MIDDLE INSOMNIA
     Dosage: 8 MG 1X PER DAY PO
     Route: 048
     Dates: start: 20070329, end: 20070403

REACTIONS (9)
  - AMNESIA [None]
  - DEPRESSION [None]
  - DISORIENTATION [None]
  - DYSARTHRIA [None]
  - EMOTIONAL DISORDER [None]
  - FEELING ABNORMAL [None]
  - GALLBLADDER DISORDER [None]
  - HEADACHE [None]
  - VISION BLURRED [None]
